FAERS Safety Report 5838913-6 (Version None)
Quarter: 2008Q3

REPORT INFORMATION
  Report Type: 
  Country: None (occurrence: None)
  Receive Date: 20080808
  Receipt Date: 20080730
  Transmission Date: 20090109
  Serious: Yes (Other)
  Sender: FDA-Public Use
  Company Number: PHBS2008GB05259

PATIENT
  Age: 36 Year
  Sex: Male

DRUGS (6)
  1. CLOZAPINE [Suspect]
     Indication: SCHIZOPHRENIA
     Dosage: 900 MG/DAY
  2. CLOZAPINE [Suspect]
     Dosage: 950 MG/DAY
  3. CLOZAPINE [Suspect]
     Dosage: 1000 MG/DAY
  4. CLOZAPINE [Suspect]
     Dosage: 1050 MG/DAY
  5. CLOZAPINE [Suspect]
     Dosage: 1100 MG/DAY
  6. SULPIRIDE [Concomitant]
     Route: 065

REACTIONS (5)
  - ANTIPSYCHOTIC DRUG LEVEL BELOW THERAPEUTIC [None]
  - BUNDLE BRANCH BLOCK RIGHT [None]
  - ELECTROCARDIOGRAM ABNORMAL [None]
  - ELECTROCARDIOGRAM QT PROLONGED [None]
  - PSYCHOTIC DISORDER [None]
